FAERS Safety Report 18935786 (Version 3)
Quarter: 2022Q2

REPORT INFORMATION
  Report Type: Spontaneous
  Country: GB (occurrence: GB)
  Receive Date: 20210225
  Receipt Date: 20220404
  Transmission Date: 20220721
  Serious: Yes (Hospitalization, Other)
  Sender: FDA-Public Use
  Company Number: GB-TEVA-2019-GB-1107958

PATIENT
  Age: 74 Year
  Sex: Female

DRUGS (2)
  1. LEVOTHYROXINE [Suspect]
     Active Substance: LEVOTHYROXINE
     Route: 065
  2. LEVOTHYROXINE [Suspect]
     Active Substance: LEVOTHYROXINE
     Dosage: ADMINISTERED FOR 6 WEEKS
     Route: 065

REACTIONS (24)
  - Cardiac disorder [Unknown]
  - Product substitution issue [Unknown]
  - Myocardial infarction [Unknown]
  - Near death experience [Unknown]
  - Urinary tract infection [Unknown]
  - Palpitations [Unknown]
  - Malaise [Unknown]
  - Alopecia [Unknown]
  - Yellow skin [Unknown]
  - Back pain [Unknown]
  - Muscular weakness [Unknown]
  - Pain in extremity [Unknown]
  - Suspected product quality issue [Unknown]
  - Breast enlargement [Unknown]
  - Lymphatic disorder [Unknown]
  - Muscle disorder [Unknown]
  - Antibody test abnormal [Unknown]
  - Blood thyroid stimulating hormone decreased [Unknown]
  - Serum ferritin increased [Unknown]
  - Hypertension [Unknown]
  - Tri-iodothyronine increased [Unknown]
  - Laboratory test abnormal [Unknown]
  - Dehydration [Unknown]
  - Constipation [Unknown]

NARRATIVE: CASE EVENT DATE: 20180101
